FAERS Safety Report 6932196-1 (Version None)
Quarter: 2010Q3

REPORT INFORMATION
  Report Type: 
  Country: None (occurrence: None)
  Receive Date: 20100819
  Receipt Date: 20100813
  Transmission Date: 20110219
  Serious: Yes (Hospitalization)
  Sender: FDA-Public Use
  Company Number: US-PERRIGO-10US012213

PATIENT
  Sex: Male
  Weight: 7.256 kg

DRUGS (1)
  1. ACETAMINOPHEN CHERRY 100 MG/ML 008 [Suspect]
     Indication: TEETHING
     Dosage: 0.8 ML, SINGLE
     Route: 048
     Dates: start: 20100710, end: 20100710

REACTIONS (7)
  - EYE DISCHARGE [None]
  - HYPERSENSITIVITY [None]
  - INFECTION [None]
  - OFF LABEL USE [None]
  - ORAL DISCHARGE [None]
  - RESPIRATORY DISTRESS [None]
  - RHINORRHOEA [None]
